FAERS Safety Report 6726609-8 (Version None)
Quarter: 2010Q2

REPORT INFORMATION
  Report Type: 
  Country: None (occurrence: None)
  Receive Date: 20100514
  Receipt Date: 20100419
  Transmission Date: 20101027
  Serious: Yes (Hospitalization, Other)
  Sender: FDA-Public Use
  Company Number: US-PFIZER INC-2003119654

PATIENT
  Sex: Female
  Weight: 91 kg

DRUGS (23)
  1. LIPITOR [Suspect]
     Indication: BLOOD CHOLESTEROL
     Dosage: 10 MG, UNK
     Route: 048
     Dates: start: 20030901, end: 20040327
  2. CELEBREX [Suspect]
     Indication: ARTHRITIS
     Route: 065
  3. LIDOCAINE 2% [Suspect]
     Route: 065
     Dates: start: 20050330
  4. ZOLOFT [Suspect]
     Dosage: 50 MG, 1X/DAY
     Route: 048
     Dates: start: 20030901
  5. WARFARIN [Suspect]
     Indication: ILL-DEFINED DISORDER
     Route: 065
  6. ZETIA [Suspect]
     Indication: ILL-DEFINED DISORDER
     Route: 065
  7. TYLENOL (CAPLET) [Concomitant]
     Route: 065
  8. TENORMIN [Concomitant]
     Route: 065
  9. CARDIZEM CD [Concomitant]
     Route: 065
  10. TRIAMTERENE AND HYDROCHLOROTHIAZIDE [Concomitant]
     Route: 065
  11. CLONOPIN [Concomitant]
     Route: 065
  12. CALCIUM [Concomitant]
     Route: 065
  13. VITAMIN E [Concomitant]
     Route: 065
  14. FLONASE [Concomitant]
     Route: 045
  15. CLARITIN [Concomitant]
     Route: 065
  16. TYLENOL (CAPLET) [Concomitant]
     Route: 065
  17. IBUPROFEN [Concomitant]
     Route: 065
  18. ACETYLSALICYLIC ACID [Concomitant]
     Route: 065
  19. ZINC [Concomitant]
     Route: 065
  20. COUMADIN [Concomitant]
     Dosage: UNK
  21. ALLEGRA [Concomitant]
  22. ERYTHROMYCIN [Concomitant]
     Dosage: UNK
  23. VIOXX [Concomitant]
     Dosage: UNK

REACTIONS (52)
  - AGITATION [None]
  - ANTIDEPRESSANT DRUG LEVEL INCREASED [None]
  - ANXIETY [None]
  - ARTHRITIS [None]
  - ASTHENIA [None]
  - ATRIAL FIBRILLATION [None]
  - BLADDER IRRITATION [None]
  - BLOOD CHOLESTEROL INCREASED [None]
  - BRONCHITIS [None]
  - CARDIAC DISORDER [None]
  - CONFUSIONAL STATE [None]
  - CONSTIPATION [None]
  - CONTUSION [None]
  - CRYING [None]
  - DIZZINESS [None]
  - DRUG INEFFECTIVE [None]
  - DRUG INTOLERANCE [None]
  - DRY EYE [None]
  - DRY MOUTH [None]
  - DRY THROAT [None]
  - DYSPNOEA [None]
  - ENDODONTIC PROCEDURE [None]
  - ENERGY INCREASED [None]
  - ENZYME ABNORMALITY [None]
  - FEELING ABNORMAL [None]
  - FIBROMYALGIA [None]
  - GAIT DISTURBANCE [None]
  - HERNIA REPAIR [None]
  - HYPERSENSITIVITY [None]
  - IMPAIRED WORK ABILITY [None]
  - INSOMNIA [None]
  - INTERVERTEBRAL DISC DEGENERATION [None]
  - INTESTINAL FUNCTIONAL DISORDER [None]
  - IRRITABLE BOWEL SYNDROME [None]
  - LOGORRHOEA [None]
  - MUSCLE DISORDER [None]
  - MUSCLE SWELLING [None]
  - NASAL DRYNESS [None]
  - ORAL SURGERY [None]
  - PAIN [None]
  - RHINITIS [None]
  - SCOLIOSIS [None]
  - SERUM SEROTONIN DECREASED [None]
  - SERUM SEROTONIN INCREASED [None]
  - SINUS DISORDER [None]
  - SLEEP DISORDER [None]
  - SPEECH DISORDER [None]
  - STRESS [None]
  - THERMAL BURN [None]
  - TREMOR [None]
  - URINARY INCONTINENCE [None]
  - WEIGHT FLUCTUATION [None]
